FAERS Safety Report 7457996-3 (Version None)
Quarter: 2011Q2

REPORT INFORMATION
  Report Type: 
  Country: None (occurrence: None)
  Receive Date: 20110504
  Receipt Date: 20110420
  Transmission Date: 20111010
  Serious: Yes (Other)
  Sender: FDA-Public Use
  Company Number: CA-JNJFOC-20110410432

PATIENT
  Age: 50 Year
  Sex: Female

DRUGS (3)
  1. PURINETHOL [Suspect]
     Indication: PRODUCT USED FOR UNKNOWN INDICATION
  2. PURINETHOL [Suspect]
  3. REMICADE [Suspect]
     Indication: PRODUCT USED FOR UNKNOWN INDICATION
     Route: 042

REACTIONS (4)
  - ASPHYXIA [None]
  - NAUSEA [None]
  - INFUSION RELATED REACTION [None]
  - WEIGHT DECREASED [None]
